FAERS Safety Report 22528880 (Version 2)
Quarter: 2023Q2

REPORT INFORMATION
  Report Type: Spontaneous
  Country: RO (occurrence: RO)
  Receive Date: 20230607
  Receipt Date: 20230620
  Transmission Date: 20230721
  Serious: Yes (Other)
  Sender: FDA-Public Use
  Company Number: RO-AUROBINDO-AUR-APL-2023-038044

PATIENT
  Age: 64 Year
  Sex: Female

DRUGS (4)
  1. IBUPROFEN SODIUM [Suspect]
     Active Substance: IBUPROFEN SODIUM
     Indication: Product used for unknown indication
     Dosage: 400 MILLIGRAM, 3 TIMES A DAY(400MG 3X1CPR/DAY)
     Route: 065
  2. COLCHICINE [Suspect]
     Active Substance: COLCHICINE
     Indication: Product used for unknown indication
     Dosage: 0.5 MILLIGRAM, TWO TIMES A DAY(0.5MG 2X1CPR/DAY)
     Route: 065
  3. IVABRADINE HYDROCHLORIDE [Suspect]
     Active Substance: IVABRADINE HYDROCHLORIDE
     Indication: Product used for unknown indication
     Dosage: 5 MILLIGRAM, TWO TIMES A DAY(5MG 2X1CPR/DAY)
     Route: 065
  4. REMDESIVIR [Concomitant]
     Active Substance: REMDESIVIR
     Indication: Antiviral treatment
     Dosage: ONCE A DAY
     Route: 065

REACTIONS (10)
  - Cardiac tamponade [Unknown]
  - Condition aggravated [Unknown]
  - Tachypnoea [Unknown]
  - Cough [Unknown]
  - Asthenia [Unknown]
  - General physical health deterioration [Unknown]
  - Somnolence [Unknown]
  - Blood pressure fluctuation [Unknown]
  - Dyspnoea [Unknown]
  - Cyanosis [Unknown]
